FAERS Safety Report 21368337 (Version 3)
Quarter: 2022Q4

REPORT INFORMATION
  Report Type: Report from Study
  Country: GB (occurrence: GB)
  Receive Date: 20220923
  Receipt Date: 20221012
  Transmission Date: 20230113
  Serious: Yes (Other)
  Sender: FDA-Public Use
  Company Number: GB-CELLTRION INC.-2022GB015205

PATIENT

DRUGS (12)
  1. RITUXIMAB [Suspect]
     Active Substance: RITUXIMAB
     Indication: Follicular lymphoma
     Dosage: (ON 01/NOV/2020 TO 01/JAN/2021, IT WAS GIVEN IN VARLILUMAB-RITUXIMAB IN THE RIVA STUDY. ON 08/SEP/20
     Dates: start: 20140801, end: 20160104
  2. RITUXIMAB [Suspect]
     Active Substance: RITUXIMAB
     Dosage: (ON 01/NOV/2020 TO 01/JAN/2021, IT WAS GIVEN IN VARLILUMAB-RITUXIMAB IN THE RIVA STUDY. ON 08/SEP/20
     Dates: start: 20140801, end: 20160104
  3. RITUXIMAB [Suspect]
     Active Substance: RITUXIMAB
     Dosage: (FROM 07/JAN/2020 TO 01/MAY/2020 IT WAS GIVEN BEAM CONSOLIDATION/CONDITIONING FOLLOWING R-CHOP, FOLL
     Dates: start: 20170323, end: 20170701
  4. RITUXIMAB [Suspect]
     Active Substance: RITUXIMAB
     Dosage: (FROM 07/JAN/2020 TO 01/MAY/2020 IT WAS GIVEN BEAM CONSOLIDATION/CONDITIONING FOLLOWING R-CHOP, FOLL
     Dates: start: 20170323, end: 20170701
  5. CYTARABINE [Suspect]
     Active Substance: CYTARABINE
     Indication: Follicular lymphoma
     Dosage: (FROM 07/JAN/2020 TO 01/MAY/2020 IT WAS GIVEN BEAM CONSOLIDATION/CONDITIONING FOLLOWING R-CHOP, FOLL
     Dates: start: 20200107, end: 20200501
  6. BENDAMUSTINE [Suspect]
     Active Substance: BENDAMUSTINE
     Indication: Follicular lymphoma
     Dosage: UNK
     Dates: start: 20140801, end: 20160104
  7. CYCLOPHOSPHAMIDE [Suspect]
     Active Substance: CYCLOPHOSPHAMIDE
     Indication: Follicular lymphoma
     Dosage: (FROM 07/JAN/2020 TO 01/MAY/2020 IT WAS GIVEN BEAM CONSOLIDATION/CONDITIONING FOLLOWING R-CHOP, FOLL
     Dates: start: 20170323, end: 20170701
  8. DOXORUBICIN HYDROCHLORIDE [Suspect]
     Active Substance: DOXORUBICIN HYDROCHLORIDE
     Indication: Follicular lymphoma
     Dosage: (FROM 07/JAN/2020 TO 01/MAY/2020 IT WAS GIVEN BEAM CONSOLIDATION/CONDITIONING FOLLOWING R-CHOP, FOLL
     Dates: start: 20170323, end: 20170701
  9. LENALIDOMIDE [Suspect]
     Active Substance: LENALIDOMIDE
     Indication: Follicular lymphoma
     Dosage: (ON 08/SEP/2021 TO 08/DEC/2021, RITUXIMAB-LENALIDOMIDE WAS GIVEN)
     Dates: start: 20210908, end: 20211208
  10. PREDNISONE [Suspect]
     Active Substance: PREDNISONE
     Indication: Follicular lymphoma
     Dosage: (FROM 07/JAN/2020 TO 01/MAY/2020 IT WAS GIVEN BEAM CONSOLIDATION/CONDITIONING FOLLOWING R-CHOP, FOLL
     Dates: start: 20170323, end: 20170701
  11. VARLILUMAB [Suspect]
     Active Substance: VARLILUMAB
     Indication: Follicular lymphoma
     Dosage: (ON 01/NOV/2020 TO 01/JAN/2021, IT WAS GIVEN IN VARLILUMAB-RITUXIMAB IN THE RIVA STUDY)
     Dates: start: 20201101, end: 20210101
  12. VINCRISTINE [Suspect]
     Active Substance: VINCRISTINE
     Indication: Follicular lymphoma
     Dosage: ((FROM 07/JAN/2020 TO 01/MAY/2020 IT WAS GIVEN BEAM CONSOLIDATION/CONDITIONING FOLLOWING R-CHOP, FOL
     Dates: start: 20170323, end: 20170701

REACTIONS (6)
  - Disease progression [Unknown]
  - Neutropenic sepsis [Unknown]
  - Bacterial infection [Unknown]
  - Viral infection [Unknown]
  - Fungal infection [Unknown]
  - Pancytopenia [Unknown]
